FAERS Safety Report 5518615-6 (Version None)
Quarter: 2007Q4

REPORT INFORMATION
  Report Type: 
  Country: None (occurrence: None)
  Receive Date: 20071113
  Receipt Date: 20071108
  Transmission Date: 20080405
  Serious: Yes (Other)
  Sender: FDA-Public Use
  Company Number: 2007S1000208

PATIENT
  Age: 71 Year
  Sex: Male
  Weight: 66 kg

DRUGS (20)
  1. NITRIC OXIDE [Suspect]
     Indication: VENTRICULAR ASSIST DEVICE INSERTION
     Dosage: 40 PPM; CONT; INH
     Route: 055
     Dates: start: 20071107, end: 20071108
  2. RAMIPRIL [Concomitant]
  3. DIGOXIN [Concomitant]
  4. PANTOPRAZOLE SODIUM [Concomitant]
  5. CALCIUM CHLORIDE  ^BIOTIKA^ [Concomitant]
  6. ADRENALINE [Concomitant]
  7. NITROGLYCERINUM   ^ARGON^ [Concomitant]
  8. MILRINONE [Concomitant]
  9. PROPOFOL [Concomitant]
  10. ETOMIDATE [Concomitant]
  11. SUFENTANIL CITRATE [Concomitant]
  12. PANCURONIUM [Concomitant]
  13. TRANXEN [Concomitant]
  14. FENISTIL [Concomitant]
  15. RANITIDINE HCL [Concomitant]
  16. CEFACLOR [Concomitant]
  17. MANNIT 10% [Concomitant]
  18. HEPARIN [Concomitant]
  19. PROTAMINE SULFATE [Concomitant]
  20. INSULIN [Concomitant]

REACTIONS (1)
  - POST PROCEDURAL HAEMORRHAGE [None]
